FAERS Safety Report 9012854 (Version 1)
Quarter: 2013Q1

REPORT INFORMATION
  Report Type: Report from Study
  Country: CH (occurrence: CH)
  Receive Date: 20130114
  Receipt Date: 20130114
  Transmission Date: 20140127
  Serious: Yes (Life-Threatening, Other)
  Sender: FDA-Public Use
  Company Number: CH-ABBOTT-12P-151-1026536-00

PATIENT
  Age: 77 Year
  Sex: Male

DRUGS (5)
  1. SEVOFLURANE [Suspect]
     Indication: OESOPHAGECTOMY
     Dates: start: 20060907, end: 20060907
  2. SEVOFLURANE [Suspect]
     Indication: GASTRIC OPERATION
  3. ETOMIDATE [Concomitant]
     Indication: INDUCTION OF ANAESTHESIA
  4. ESOMEPRAZOL [Concomitant]
     Indication: PRODUCT USED FOR UNKNOWN INDICATION
  5. ATENOLOL [Concomitant]
     Indication: PRODUCT USED FOR UNKNOWN INDICATION

REACTIONS (2)
  - Septic shock [Unknown]
  - Gastrointestinal necrosis [Unknown]
